FAERS Safety Report 16265093 (Version 1)
Quarter: 2019Q2

REPORT INFORMATION
  Report Type: Spontaneous
  Country: US (occurrence: US)
  Receive Date: 20190328
  Receipt Date: 20190328
  Transmission Date: 20190711
  Serious: Yes (Hospitalization)
  Sender: FDA-Public Use
  Company Number: None

PATIENT
  Age: 57 Year
  Sex: Male
  Weight: 77.56 kg

DRUGS (1)
  1. ISONIAZIDE 300 MG TABLETS [Suspect]
     Active Substance: ISONIAZID
     Indication: TUBERCULOSIS
     Route: 048
     Dates: start: 20190305, end: 20190323

REACTIONS (3)
  - Fall [None]
  - Hallucination [None]
  - Injury [None]

NARRATIVE: CASE EVENT DATE: 20190323
